FAERS Safety Report 6286997-6 (Version None)
Quarter: 2009Q3

REPORT INFORMATION
  Report Type: 
  Country: None (occurrence: None)
  Receive Date: 20090724
  Receipt Date: 20081125
  Transmission Date: 20100115
  Serious: Yes (Hospitalization)
  Sender: FDA-Public Use
  Company Number: 2008-1740

PATIENT
  Age: 3 Year
  Sex: Male
  Weight: 7.5 kg

DRUGS (3)
  1. INCRELEX [Suspect]
     Dosage: SEE IMAGE
     Route: 058
     Dates: start: 20081104, end: 20081110
  2. INCRELEX [Suspect]
     Dosage: SEE IMAGE
     Route: 058
     Dates: start: 20081111, end: 20081111
  3. INCRELEX [Suspect]
     Dosage: SEE IMAGE
     Route: 058
     Dates: start: 20081112

REACTIONS (2)
  - ACCIDENTAL OVERDOSE [None]
  - HYPOGLYCAEMIA [None]
